FAERS Safety Report 10216823 (Version 1)
Quarter: 2014Q2

REPORT INFORMATION
  Report Type: Spontaneous
  Country: KR (occurrence: KR)
  Receive Date: 20140604
  Receipt Date: 20140604
  Transmission Date: 20141212
  Serious: Yes (Disabling)
  Sender: FDA-Public Use
  Company Number: KR-AMGEN INC.-KORSP2014040442

PATIENT
  Age: 65 Year
  Sex: Male

DRUGS (17)
  1. NESP [Suspect]
     Indication: NEPHROGENIC ANAEMIA
     Dosage: 40 MUG, QWK
     Route: 058
     Dates: start: 20110531
  2. NESP [Suspect]
     Dosage: 180 MUG, QWK
     Route: 058
     Dates: start: 20140513
  3. EPOETIN ALFA [Concomitant]
     Indication: PRODUCT USED FOR UNKNOWN INDICATION
     Dosage: 10000 IU, 3X/WEEK
     Route: 042
     Dates: start: 20130917
  4. IRON [Concomitant]
     Dosage: UNK
     Route: 065
  5. GLICLAZIDE [Concomitant]
     Dosage: UNK
     Route: 065
  6. NIFEDIPINE [Concomitant]
     Dosage: UNK
     Route: 065
  7. VALSARTAN [Concomitant]
     Dosage: UNK
     Route: 065
  8. ASPIRIN [Concomitant]
     Dosage: UNK
     Route: 065
  9. ALLOPURINOL [Concomitant]
     Dosage: UNK
     Route: 065
  10. CALCIUM CARBONATE [Concomitant]
     Dosage: UNK
     Route: 065
  11. FUROSEMIDE [Concomitant]
     Dosage: UNK
     Route: 065
  12. ENTECAVIR [Concomitant]
     Dosage: UNK
     Route: 065
  13. URSODEOXYCHOLIC ACID [Concomitant]
     Dosage: UNK
     Route: 065
  14. PREDNISOLONE [Concomitant]
     Dosage: UNK
     Route: 065
  15. OMEPRAZOLE [Concomitant]
     Dosage: UNK
     Route: 065
  16. MYCOPHENOLATE MOFETIL [Concomitant]
     Dosage: UNK
     Route: 065
  17. MULTIVITAMIN                       /00097801/ [Concomitant]
     Route: 065

REACTIONS (1)
  - Anaemia [Unknown]
